FAERS Safety Report 7811498-0 (Version None)
Quarter: 2011Q4

REPORT INFORMATION
  Report Type: 
  Country: None (occurrence: None)
  Receive Date: 20111013
  Receipt Date: 20111013
  Transmission Date: 20120403
  Serious: Yes (Other)
  Sender: FDA-Public Use
  Company Number: None

PATIENT
  Age: 55 Year
  Sex: Male
  Weight: 90.718 kg

DRUGS (2)
  1. CRESTOR [Concomitant]
     Indication: BLOOD CHOLESTEROL INCREASED
     Route: 048
     Dates: start: 19980201, end: 20040101
  2. LIPITOR [Suspect]
     Indication: BLOOD CHOLESTEROL INCREASED
     Route: 048
     Dates: start: 20040201, end: 20090201

REACTIONS (3)
  - PANIC DISORDER [None]
  - MEMORY IMPAIRMENT [None]
  - FEELING ABNORMAL [None]
